FAERS Safety Report 17658083 (Version 2)
Quarter: 2020Q4

REPORT INFORMATION
  Report Type: Spontaneous
  Country: US (occurrence: US)
  Receive Date: 20200411
  Receipt Date: 20201015
  Transmission Date: 20210113
  Serious: No
  Sender: FDA-Public Use
  Company Number: US-TEVA-2020-US-1220173

PATIENT
  Age: 80 Year
  Sex: Male

DRUGS (13)
  1. ACETAMINOPHEN W/OXYCODONE [Suspect]
     Active Substance: ACETAMINOPHEN\OXYCODONE HYDROCHLORIDE
     Dosage: FORM STRENGTH: 5.325 (UNITS NOT REPORTED)
     Route: 065
  2. PRIMIDONE. [Suspect]
     Active Substance: PRIMIDONE
     Dosage: 25 MILLIGRAM DAILY;
     Route: 065
  3. GABAPENTIN. [Suspect]
     Active Substance: GABAPENTIN
     Dosage: DOSE:100 MG, TAKE FOR 3 DAYS
     Route: 065
  4. PANTOPRAZOLE [Concomitant]
     Active Substance: PANTOPRAZOLE
     Dosage: DOSE: 40 MG, QD (6 AM)
  5. GABAPENTIN. [Suspect]
     Active Substance: GABAPENTIN
     Dosage: 81 MILLIGRAM DAILY;
     Route: 065
  6. HYDROCODONE AND ACETAMINOPHEN [Suspect]
     Active Substance: ACETAMINOPHEN\HYDROCODONE
     Indication: PAIN
     Dosage: DOSE: 5.325 MG, TAKE 1 AS NEEDED
     Route: 065
  7. GABAPENTIN. [Suspect]
     Active Substance: GABAPENTIN
     Dosage: DOSE:300 MG, TAKE FOR 4 DAYS
     Route: 065
     Dates: start: 20150205
  8. RESTORIL [Concomitant]
     Active Substance: TEMAZEPAM
     Dosage: DOSE: 30 MG, AT BEDTIME (8 PM)
  9. PRIMIDONE. [Suspect]
     Active Substance: PRIMIDONE
     Dosage: 50 MILLIGRAM DAILY;
     Route: 065
  10. TRAMADOL MYLAN [Suspect]
     Active Substance: TRAMADOL
     Indication: PAIN
     Route: 065
     Dates: start: 20181126, end: 20191023
  11. ATORVASTATIN [Concomitant]
     Active Substance: ATORVASTATIN
     Dosage: DOSE: 40 MG, QD (8PM)
  12. LISINOPRIL. [Concomitant]
     Active Substance: LISINOPRIL
     Dosage: DOSE: 2.5 MG, QD (8 AM)
  13. MERITAL [Concomitant]
     Active Substance: MEMANTINE

REACTIONS (10)
  - Dizziness [Unknown]
  - Impaired driving ability [Unknown]
  - Fall [Unknown]
  - Amnesia [Unknown]
  - Feeling drunk [Unknown]
  - Headache [Unknown]
  - Haemorrhoids [Unknown]
  - Head banging [Unknown]
  - Pharyngeal ulceration [Unknown]
  - Vision blurred [Unknown]
